FAERS Safety Report 20081255 (Version 2)
Quarter: 2021Q4

REPORT INFORMATION
  Report Type: Report from Study
  Country: KR (occurrence: None)
  Receive Date: 20211117
  Receipt Date: 20211124
  Transmission Date: 20220303
  Serious: Yes (Hospitalization)
  Sender: FDA-Public Use
  Company Number: KR-ROCHE-2955115

PATIENT
  Age: 45 Year
  Sex: Male
  Weight: 67.4 kg

DRUGS (7)
  1. TIRAGOLUMAB [Suspect]
     Active Substance: TIRAGOLUMAB
     Indication: Small cell lung cancer extensive stage
     Dosage: ON 19/OCT/2021, SHE RECEIVED MOST RECENT DOSE OF STUDY DRUG PRIOR TO AE AND SAE.
     Route: 042
     Dates: start: 20200427
  2. ATEZOLIZUMAB [Suspect]
     Active Substance: ATEZOLIZUMAB
     Indication: Small cell lung cancer extensive stage
     Dosage: ON 19/OCT/2021, SHE RECEIVED MOST RECENT DOSE OF STUDY DRUG PRIOR TO AE AND SAE.
     Route: 042
     Dates: start: 20200427
  3. CARBOPLATIN [Suspect]
     Active Substance: CARBOPLATIN
     Indication: Small cell lung cancer extensive stage
     Dosage: ON 13/JUL/2020, SHE RECEIVED MOST RECENT DOSE OF STUDY DRUG PRIOR TO AE?DOSE LAST STUDY DRUG ADMIN P
     Route: 042
     Dates: start: 20200427
  4. ETOPOSIDE [Suspect]
     Active Substance: ETOPOSIDE
     Indication: Small cell lung cancer extensive stage
     Dosage: ON 15/JUL/2020, SHE RECEIVED MOST RECENT DOSE OF STUDY DRUG PRIOR TO AE AND SAE.?DOSE LAST STUDY DRU
     Route: 042
     Dates: start: 20200427
  5. CHOLECALCIFEROL [Concomitant]
     Active Substance: CHOLECALCIFEROL
     Indication: Osteoporosis
     Route: 048
     Dates: start: 20200323
  6. PREDNICARBATE [Concomitant]
     Active Substance: PREDNICARBATE
     Indication: Rash pruritic
     Dosage: 1 OTHER
     Route: 061
     Dates: start: 20200518
  7. LEVOCETIRIZINE [Concomitant]
     Active Substance: LEVOCETIRIZINE
     Route: 048

REACTIONS (1)
  - Metastases to meninges [Not Recovered/Not Resolved]

NARRATIVE: CASE EVENT DATE: 20211109
